FAERS Safety Report 5655351-X (Version None)
Quarter: 2008Q1

REPORT INFORMATION
  Report Type: 
  Country: None (occurrence: None)
  Receive Date: 20080303
  Receipt Date: 20080226
  Transmission Date: 20080703
  Serious: Yes (Death)
  Sender: FDA-Public Use
  Company Number: GB-BRACCO-BRO-012404

PATIENT
  Sex: Female

DRUGS (2)
  1. NIOPAM [Suspect]
     Indication: COMPUTERISED TOMOGRAM ABDOMEN
     Dosage: 3-4 ML/SEC
     Route: 042
     Dates: start: 20071122, end: 20071122
  2. NIOPAM [Suspect]
     Indication: ABDOMINAL PAIN
     Dosage: 3-4 ML/SEC
     Route: 042
     Dates: start: 20071122, end: 20071122

REACTIONS (1)
  - CARDIAC ARREST [None]
